FAERS Safety Report 5335303-X (Version None)
Quarter: 2007Q2

REPORT INFORMATION
  Report Type: 
  Country: None (occurrence: None)
  Receive Date: 20070525
  Receipt Date: 20070515
  Transmission Date: 20071010
  Serious: Yes (Other)
  Sender: FDA-Public Use
  Company Number: GB-PFIZER INC-2007036545

PATIENT
  Age: 45 Year
  Sex: Female

DRUGS (1)
  1. CHAMPIX [Suspect]
     Route: 048
     Dates: start: 20070314, end: 20070330

REACTIONS (2)
  - CHROMATURIA [None]
  - RENAL DISORDER [None]
